FAERS Safety Report 26059547 (Version 2)
Quarter: 2025Q4

REPORT INFORMATION
  Report Type: Spontaneous
  Country: CN (occurrence: CN)
  Receive Date: 20251118
  Receipt Date: 20251119
  Transmission Date: 20260117
  Serious: Yes (Hospitalization)
  Sender: MERCK SHARP & DOHME LLC
  Company Number: CN-009507513-2349392

PATIENT
  Age: 68 Year
  Sex: Female
  Weight: 59 kg

DRUGS (7)
  1. PEMBROLIZUMAB [Suspect]
     Active Substance: PEMBROLIZUMAB
     Indication: Squamous cell carcinoma of lung
     Dosage: TIME INTERVAL: TOTAL: 1 TIME 1 DAY
     Route: 041
     Dates: start: 20251103, end: 20251103
  2. CARBOPLATIN [Suspect]
     Active Substance: CARBOPLATIN
     Indication: Squamous cell carcinoma of lung
     Dosage: TIME INTERVAL: TOTAL: DAY 1, 1 TIME 1 DAY
     Route: 041
     Dates: start: 20251103, end: 20251103
  3. PACLITAXEL [Suspect]
     Active Substance: PACLITAXEL
     Indication: Squamous cell carcinoma of lung
     Dosage: TIME INTERVAL: TOTAL: 1 TIME 1 DAY, DAY 1
     Route: 041
     Dates: start: 20251103, end: 20251103
  4. PACLITAXEL [Suspect]
     Active Substance: PACLITAXEL
     Indication: Squamous cell carcinoma of lung
     Dosage: TIME INTERVAL: TOTAL: DAY 8
     Route: 041
     Dates: start: 20251110, end: 20251110
  5. SODIUM CHLORIDE [Concomitant]
     Active Substance: SODIUM CHLORIDE
     Indication: Squamous cell carcinoma of lung
     Dosage: DAY 1
     Route: 041
     Dates: start: 20251103, end: 20251103
  6. SODIUM CHLORIDE [Concomitant]
     Active Substance: SODIUM CHLORIDE
     Indication: Squamous cell carcinoma of lung
     Dosage: DAY 8
     Route: 041
     Dates: start: 20251110, end: 20251110
  7. DEXTROSE [Concomitant]
     Active Substance: DEXTROSE MONOHYDRATE
     Indication: Squamous cell carcinoma of lung
     Dosage: DAY 1
     Route: 041
     Dates: start: 20251103, end: 20251103

REACTIONS (1)
  - Myelosuppression [Recovering/Resolving]

NARRATIVE: CASE EVENT DATE: 20251106
